FAERS Safety Report 4448753-0 (Version None)
Quarter: 2004Q3

REPORT INFORMATION
  Report Type: 
  Country: None (occurrence: None)
  Receive Date: 20040909
  Receipt Date: 20040909
  Transmission Date: 20050211
  Serious: Yes (Life-Threatening, Hospitalization)
  Sender: FDA-Public Use
  Company Number: None

PATIENT
  Age: 61 Year
  Sex: Female
  Weight: 49.4421 kg

DRUGS (1)
  1. REMICADE [Suspect]
     Indication: RHEUMATOID ARTHRITIS
     Dosage: 200-300 MG EVERY 6 WKS/LAST INFUSION 7-29-04
     Dates: start: 20040729

REACTIONS (5)
  - CONVULSION [None]
  - NERVOUS SYSTEM DISORDER [None]
  - THROMBOCYTHAEMIA [None]
  - URINARY TRACT INFECTION [None]
  - VASCULITIS [None]
